FAERS Safety Report 4936110-X (Version None)
Quarter: 2006Q1

REPORT INFORMATION
  Report Type: 
  Country: None (occurrence: None)
  Receive Date: 20060307
  Receipt Date: 20051020
  Transmission Date: 20060701
  Serious: No
  Sender: FDA-Public Use
  Company Number: US-GLAXOSMITHKLINE-A0579004A

PATIENT
  Age: 47 Year
  Sex: Female
  Weight: 63.6 kg

DRUGS (2)
  1. REQUIP [Suspect]
     Indication: RESTLESS LEGS SYNDROME
     Dosage: 1MG PER DAY
     Route: 048
     Dates: start: 20050901
  2. METHADONE [Concomitant]
     Dosage: 10MG FOUR TIMES PER DAY

REACTIONS (1)
  - ANORGASMIA [None]
